FAERS Safety Report 17028879 (Version 1)
Quarter: 2019Q4

REPORT INFORMATION
  Report Type: Spontaneous
  Country: US (occurrence: US)
  Receive Date: 20191114
  Receipt Date: 20191114
  Transmission Date: 20200122
  Serious: No
  Sender: FDA-Public Use
  Company Number: US-GLAXOSMITHKLINE-US2019AMR205418

PATIENT
  Sex: Male
  Weight: 72 kg

DRUGS (2)
  1. NICODERM CQ [Suspect]
     Active Substance: NICOTINE
     Indication: SMOKING CESSATION THERAPY
     Dosage: 14 MG, QD
  2. NICODERM CQ [Suspect]
     Active Substance: NICOTINE
     Indication: SMOKING CESSATION THERAPY
     Dosage: 21 MG, QD

REACTIONS (6)
  - Chronic obstructive pulmonary disease [Unknown]
  - Application site pain [Unknown]
  - Nausea [Unknown]
  - Malaise [Unknown]
  - Abdominal discomfort [Unknown]
  - Condition aggravated [Unknown]
